FAERS Safety Report 9705943 (Version 1)
Quarter: 2013Q4

REPORT INFORMATION
  Report Type: Spontaneous
  Country: US (occurrence: US)
  Receive Date: 20131122
  Receipt Date: 20131122
  Transmission Date: 20140711
  Serious: No
  Sender: FDA-Public Use
  Company Number: US-TEVA-445613USA

PATIENT
  Age: 82 Year
  Sex: Male
  Weight: 81.72 kg

DRUGS (2)
  1. QNASL [Suspect]
     Indication: DYSPNOEA
  2. OCEAN NASAL SPRAY [Concomitant]

REACTIONS (4)
  - Drug ineffective [Unknown]
  - Off label use [Unknown]
  - Nasal congestion [Unknown]
  - Expired drug administered [Unknown]
